FAERS Safety Report 24177393 (Version 1)
Quarter: 2024Q3

REPORT INFORMATION
  Report Type: Spontaneous
  Country: FR (occurrence: FR)
  Receive Date: 20240806
  Receipt Date: 20240806
  Transmission Date: 20241016
  Serious: Yes (Congenital Anomaly, Other)
  Sender: AUROBINDO
  Company Number: FR-SA-SAC20240429001093

PATIENT
  Sex: Male

DRUGS (1)
  1. VALPROIC ACID [Suspect]
     Active Substance: VALPROIC ACID
     Indication: Product used for unknown indication
     Dosage: UNK
     Route: 065

REACTIONS (7)
  - Language disorder [Unknown]
  - Developmental delay [Unknown]
  - Exposure via grandmother [Unknown]
  - Transgenerational epigenetic inheritance [Unknown]
  - Communication disorder [Unknown]
  - Autism spectrum disorder [Unknown]
  - Disturbance in attention [Unknown]
